FAERS Safety Report 4509208-8 (Version None)
Quarter: 2004Q4

REPORT INFORMATION
  Report Type: 
  Country: None (occurrence: None)
  Receive Date: 20041123
  Receipt Date: 20020516
  Transmission Date: 20050328
  Serious: Yes (Hospitalization, Other)
  Sender: FDA-Public Use
  Company Number: US-MERCK-0205USA02059

PATIENT
  Age: 80 Year
  Sex: Male
  Weight: 77 kg

DRUGS (20)
  1. VIOXX [Suspect]
     Indication: ARTHRITIS
     Route: 048
     Dates: start: 19991124, end: 20010801
  2. COUMADIN [Concomitant]
     Indication: BLOOD DISORDER
     Route: 065
     Dates: start: 19930101
  3. COUMADIN [Concomitant]
     Route: 065
     Dates: start: 19930101
  4. AUGMENTIN '125' [Concomitant]
     Route: 065
  5. CLONAZEPAM [Concomitant]
     Route: 065
  6. ACIPHEX [Concomitant]
     Route: 065
  7. ZESTRIL [Concomitant]
     Route: 065
  8. DIABETA [Concomitant]
     Route: 048
  9. TYLENOL W/ CODEINE [Concomitant]
     Route: 065
  10. REGLAN [Concomitant]
     Route: 065
  11. RANITIDINE [Concomitant]
     Route: 048
  12. VITAMIN E [Concomitant]
     Route: 065
  13. TRIAMTERENE [Concomitant]
     Route: 065
  14. LEVOBUNOLOL HYDROCHLORIDE [Concomitant]
     Route: 047
  15. DOMEBORO [Concomitant]
     Route: 001
  16. AMOXICILLIN [Concomitant]
     Route: 065
  17. LACTULOSE [Concomitant]
     Route: 065
  18. LOTRISONE [Concomitant]
     Route: 065
  19. TRIAMCINOLONE [Concomitant]
     Route: 065
  20. PREVACID [Concomitant]
     Route: 065

REACTIONS (32)
  - ABDOMINAL PAIN [None]
  - ACANTHOSIS [None]
  - ACTINIC KERATOSIS [None]
  - ASTHENIA [None]
  - BLOOD DISORDER [None]
  - BLOOD GLUCOSE DECREASED [None]
  - BLOOD SODIUM DECREASED [None]
  - CARDIAC FAILURE CHRONIC [None]
  - CARDIOMYOPATHY [None]
  - CONSTIPATION [None]
  - DIZZINESS [None]
  - DYSPLASIA [None]
  - ECZEMA [None]
  - FALL [None]
  - GASTRIC DISORDER [None]
  - GASTROINTESTINAL DISORDER [None]
  - GASTROOESOPHAGEAL REFLUX DISEASE [None]
  - HYPERCHOLESTEROLAEMIA [None]
  - HYPERTENSION [None]
  - INJURY [None]
  - LUMBAR SPINAL STENOSIS [None]
  - LUNG INFILTRATION [None]
  - MYOCARDIAL INFARCTION [None]
  - MYOCARDIAL ISCHAEMIA [None]
  - NAUSEA [None]
  - PNEUMONIA [None]
  - PSORIASIS [None]
  - ROSACEA [None]
  - SICK SINUS SYNDROME [None]
  - SKIN INFECTION [None]
  - SLEEP DISORDER [None]
  - SQUAMOUS CELL CARCINOMA [None]
